FAERS Safety Report 8523191-X (Version None)
Quarter: 2012Q3

REPORT INFORMATION
  Report Type: 
  Country: None (occurrence: None)
  Receive Date: 20120713
  Receipt Date: 20120713
  Transmission Date: 20120928
  Serious: Yes (Hospitalization)
  Sender: FDA-Public Use
  Company Number: None

PATIENT
  Age: 41 Year
  Sex: Female
  Weight: 68 kg

DRUGS (3)
  1. FEXOFENADINE [Concomitant]
  2. YAZ [Suspect]
     Indication: ORAL CONTRACEPTION
     Dosage: ONE TABLET DAILY PO PRIOR TO ADMISSION
     Route: 048
  3. LEVALBUTEROL HCL [Concomitant]

REACTIONS (1)
  - PULMONARY EMBOLISM [None]
